FAERS Safety Report 6041526-7 (Version None)
Quarter: 2009Q1

REPORT INFORMATION
  Report Type: 
  Country: None (occurrence: None)
  Receive Date: 20090116
  Receipt Date: 20081022
  Transmission Date: 20090719
  Serious: No
  Sender: FDA-Public Use
  Company Number: US-BRISTOL-MYERS SQUIBB COMPANY-14379077

PATIENT
  Age: 18 Year
  Sex: Female
  Weight: 61 kg

DRUGS (3)
  1. ABILIFY [Suspect]
     Indication: ANXIETY
     Dosage: INITIATED AT 2 MG PER DAY AND THEN DOSE INCREASED TO 5MG/D,INTERUPPTED+ RESTARTED AND DISCONTINUED
  2. ABILIFY [Suspect]
     Indication: AFFECTIVE DISORDER
     Dosage: INITIATED AT 2 MG PER DAY AND THEN DOSE INCREASED TO 5MG/D,INTERUPPTED+ RESTARTED AND DISCONTINUED
  3. PROZAC [Suspect]

REACTIONS (1)
  - ANXIETY [None]
